FAERS Safety Report 4880765-5 (Version None)
Quarter: 2006Q1

REPORT INFORMATION
  Report Type: 
  Country: None (occurrence: None)
  Receive Date: 20060111
  Receipt Date: 20051118
  Transmission Date: 20060701
  Serious: No
  Sender: FDA-Public Use
  Company Number: 2005S1000264

PATIENT
  Weight: 86.4 kg

DRUGS (1)
  1. CUBICIN [Suspect]
     Indication: LOCALISED INFECTION
     Dosage: 400 MG;Q24H;IV
     Route: 042
     Dates: start: 20051006, end: 20051020

REACTIONS (4)
  - ANGINA PECTORIS [None]
  - FATIGUE [None]
  - MUSCULAR WEAKNESS [None]
  - MYALGIA [None]
